FAERS Safety Report 15530355 (Version 6)
Quarter: 2019Q1

REPORT INFORMATION
  Report Type: Report from Study
  Country: US (occurrence: US)
  Receive Date: 20181018
  Receipt Date: 20190318
  Transmission Date: 20190417
  Serious: Yes (Hospitalization)
  Sender: FDA-Public Use
  Company Number: US-ACTELION-A-NJ2018-179924

PATIENT
  Age: 65 Year
  Sex: Female
  Weight: 52.15 kg

DRUGS (21)
  1. BUMETANIDE. [Concomitant]
     Active Substance: BUMETANIDE
     Indication: JOINT SWELLING
     Dosage: 1 DF, BID
     Route: 048
     Dates: start: 20180922, end: 20181001
  2. IRON [Concomitant]
     Active Substance: IRON
     Dosage: 130 MG, QD
     Dates: start: 2017
  3. OMEPRAZOLE. [Concomitant]
     Active Substance: OMEPRAZOLE
     Dosage: 20 MG, QD
     Dates: start: 2008
  4. WARFARIN [Concomitant]
     Active Substance: WARFARIN
     Dosage: 2MG, 1MG ALTERNATING QD
     Dates: start: 2009
  5. ASPIRIN. [Concomitant]
     Active Substance: ASPIRIN
     Dosage: 81 MG, QD
     Dates: start: 2008
  6. METOPROLOL. [Concomitant]
     Active Substance: METOPROLOL
     Dosage: 100 MG, QD
     Dates: start: 2009
  7. UPTRAVI [Suspect]
     Active Substance: SELEXIPAG
     Indication: PULMONARY ARTERIAL HYPERTENSION
     Dosage: 200 MCG, QD
     Route: 048
     Dates: start: 20181227, end: 20190305
  8. TADALAFIL. [Concomitant]
     Active Substance: TADALAFIL
     Dosage: 80 MG, QD
     Dates: start: 201808
  9. OPSUMIT [Suspect]
     Active Substance: MACITENTAN
     Indication: PULMONARY ARTERIAL HYPERTENSION
     Dosage: 10 MG, QD
     Route: 048
     Dates: start: 20180929, end: 20181106
  10. BUMETANIDE. [Concomitant]
     Active Substance: BUMETANIDE
     Indication: WEIGHT INCREASED
  11. IBANDRONATE [Concomitant]
     Active Substance: IBANDRONATE SODIUM
     Dosage: 150 MG, Q1MONTH
     Dates: start: 2012
  12. FUROSEMIDE. [Concomitant]
     Active Substance: FUROSEMIDE
     Dosage: UNK
     Dates: start: 20180930
  13. VITAMIN D [Concomitant]
     Active Substance: CHOLECALCIFEROL
     Dosage: 1000 U, QD
     Dates: start: 2010
  14. POTASSIUM [Concomitant]
     Active Substance: POTASSIUM
     Dosage: 20 MEQ, BID
     Dates: start: 201801
  15. BUMETANIDE. [Concomitant]
     Active Substance: BUMETANIDE
     Indication: DYSPNOEA
     Dosage: 3 DF, QD
     Route: 048
     Dates: start: 20181002
  16. CETRIZINE [Concomitant]
     Active Substance: CETIRIZINE HYDROCHLORIDE
     Dosage: 10 MG, QD
     Dates: start: 2008
  17. FUROSEMIDE. [Concomitant]
     Active Substance: FUROSEMIDE
     Dosage: 60MG QAM, 40MG QPM
     Dates: start: 2009
  18. VENTOLIN [Concomitant]
     Active Substance: ALBUTEROL SULFATE
     Dosage: UNK, PRN
     Route: 055
     Dates: start: 2017
  19. TORSEMIDE. [Concomitant]
     Active Substance: TORSEMIDE
     Dosage: 5 DF, QD
     Dates: end: 20180922
  20. BUMETANIDE. [Concomitant]
     Active Substance: BUMETANIDE
     Indication: HAEMOPTYSIS
  21. IRON [Concomitant]
     Active Substance: IRON
     Dosage: UNK
     Dates: start: 20181025

REACTIONS (11)
  - Blood iron decreased [Not Recovered/Not Resolved]
  - Diuretic therapy [Unknown]
  - Blood count abnormal [Recovered/Resolved]
  - Oedema peripheral [Not Recovered/Not Resolved]
  - Product dose omission [Recovered/Resolved]
  - Weight increased [Not Recovered/Not Resolved]
  - Haemoptysis [Not Recovered/Not Resolved]
  - Pulmonary oedema [Not Recovered/Not Resolved]
  - Dyspnoea [Not Recovered/Not Resolved]
  - Haemoglobin decreased [Unknown]
  - Oedema [Not Recovered/Not Resolved]

NARRATIVE: CASE EVENT DATE: 2018
